FAERS Safety Report 24716458 (Version 1)
Quarter: 2024Q4

REPORT INFORMATION
  Report Type: Report from Study
  Country: DE (occurrence: DE)
  Receive Date: 20241210
  Receipt Date: 20241210
  Transmission Date: 20250115
  Serious: Yes (Other)
  Sender: ACCORD
  Company Number: None

PATIENT
  Age: 56 Year
  Sex: Female
  Weight: 56 kg

DRUGS (8)
  1. DOCETAXEL [Suspect]
     Active Substance: DOCETAXEL
     Indication: Breast cancer
     Dosage: LAST ADMINISTRATION OF DOCETAXEL PRIOR TO THE EVENT WAS ON 21-AUG-2018?FREQUENCY TEXT: CYCLICAL
     Dates: start: 20180619
  2. PERTUZUMAB [Suspect]
     Active Substance: PERTUZUMAB
     Indication: Breast cancer
     Dosage: LAST ADMINISTRATION OF PERTUZUMAB PRIOR TO THE EVENT WAS ON 21-AUG-2018?FREQUENCY TEXT: CYCLICAL
     Dates: start: 20180619
  3. TRASTUZUMAB [Suspect]
     Active Substance: TRASTUZUMAB
     Indication: Breast cancer
     Dosage: ON 21-AUG-2018, SHE RECEIVED LAST ADMINISTRATION PRIOR TO ADVERSE EVENT.?FREQUENCY TEXT: CYCLICAL
     Dates: start: 20180619, end: 20180710
  4. PERTUZUMAB [Suspect]
     Active Substance: PERTUZUMAB
     Indication: Breast cancer
     Dosage: LAST ADMINISTRATION OF PERTUZUMAB PRIOR TO THE EVENT WAS ON 21-AUG-2018, FREQUENCY TEXT: CYCLICAL
     Dates: start: 20180821
  5. PERTUZUMAB [Suspect]
     Active Substance: PERTUZUMAB
     Indication: Breast cancer
     Dosage: LAST ADMINISTRATION OF PERTUZUMAB PRIOR TO THE EVENT WAS ON 21-AUG-2018?FREQUENCY TEXT: CYCLICAL
  6. DOCETAXEL [Suspect]
     Active Substance: DOCETAXEL
     Indication: Breast cancer
     Dosage: LAST ADMINISTRATION OF DOCETAXEL PRIOR TO THE EVENT WAS ON 21-AUG-2018?FREQUENCY TEXT: CYCLICAL
  7. TRASTUZUMAB [Suspect]
     Active Substance: TRASTUZUMAB
     Indication: Breast cancer
     Dosage: FREQUENCY TEXT: CYCLICAL
     Dates: end: 20180710
  8. TRASTUZUMAB [Suspect]
     Active Substance: TRASTUZUMAB
     Indication: Breast cancer
     Dosage: FREQUENCY TEXT: CYCLICAL
     Dates: start: 20180619, end: 20180731

REACTIONS (3)
  - Soft tissue infection [Recovering/Resolving]
  - Mastitis [Not Recovered/Not Resolved]
  - Oedema peripheral [Recovered/Resolved]

NARRATIVE: CASE EVENT DATE: 20180723
